FAERS Safety Report 7004282-1 (Version None)
Quarter: 2010Q3

REPORT INFORMATION
  Report Type: 
  Country: None (occurrence: None)
  Receive Date: 20100921
  Receipt Date: 20100910
  Transmission Date: 20110219
  Serious: Yes (Hospitalization)
  Sender: FDA-Public Use
  Company Number: US-BIOGENIDEC-2010BI028761

PATIENT
  Age: 65 Year
  Sex: Female

DRUGS (7)
  1. TYSABRI [Suspect]
     Indication: MULTIPLE SCLEROSIS
     Route: 042
     Dates: start: 20050203, end: 20050101
  2. TYSABRI [Suspect]
     Route: 042
     Dates: start: 20061012
  3. PRIMIDONE [Concomitant]
  4. VALIUM [Concomitant]
  5. REMERON [Concomitant]
  6. ENABLEX [Concomitant]
  7. SYNTHROID [Concomitant]

REACTIONS (1)
  - THALAMIC INFARCTION [None]
